FAERS Safety Report 4790099-5 (Version None)
Quarter: 2005Q4

REPORT INFORMATION
  Report Type: 
  Country: None (occurrence: None)
  Receive Date: 20051006
  Receipt Date: 20050921
  Transmission Date: 20060501
  Serious: Yes (Hospitalization, Other)
  Sender: FDA-Public Use
  Company Number: PHEH2005US10496

PATIENT
  Age: 55 Year
  Sex: Male

DRUGS (12)
  1. GLEEVEC [Suspect]
     Indication: CHRONIC MYELOID LEUKAEMIA
     Dosage: UNK, UNK
     Route: 048
     Dates: start: 20040901, end: 20050601
  2. GLEEVEC [Suspect]
     Dates: start: 20050919
  3. GABAPENTIN [Concomitant]
     Indication: NEUROPATHY
     Dosage: 300 MG, TID
  4. HYDROCODONE [Concomitant]
     Indication: PAIN
     Dosage: 5/500 MG, UNK
     Dates: start: 20041201
  5. CARTIA XT [Concomitant]
     Indication: ATRIAL FIBRILLATION
     Dosage: 120 MG, QD
     Route: 048
  6. CARTIA XT [Concomitant]
     Route: 042
  7. TUSSIONEX [Concomitant]
     Indication: COUGH
     Dosage: 1-2 TSP, Q6H PRN
     Dates: start: 20050926
  8. STAVUDINE [Concomitant]
     Dosage: 40 MG, BID
     Route: 048
  9. EPIVIR [Concomitant]
     Dosage: 150 MG, BID
     Route: 048
  10. SUSTIVA [Concomitant]
     Dosage: 600 MG, QD
  11. VIRACEPT [Concomitant]
     Dosage: 1250 MG, BID
  12. FAMVIR [Concomitant]
     Dosage: 250 MG, BID

REACTIONS (24)
  - ABASIA [None]
  - ARTHRALGIA [None]
  - ASTHENIA [None]
  - ATRIAL FIBRILLATION [None]
  - BLAST CRISIS IN MYELOGENOUS LEUKAEMIA [None]
  - CANDIDIASIS [None]
  - DISEASE PROGRESSION [None]
  - DRUG RESISTANCE [None]
  - FEBRILE NEUTROPENIA [None]
  - HYPOVOLAEMIA [None]
  - LETHARGY [None]
  - LEUKOCYTOSIS [None]
  - LYMPH NODE PAIN [None]
  - LYMPHADENOPATHY [None]
  - NEUTROPHILIA [None]
  - OEDEMA [None]
  - OXYGEN SATURATION DECREASED [None]
  - PAIN [None]
  - PANCYTOPENIA [None]
  - PHARYNGITIS [None]
  - PYREXIA [None]
  - SPLENECTOMY [None]
  - SPLENOMEGALY [None]
  - THROMBOCYTOPENIA [None]
